FAERS Safety Report 7472865-0 (Version None)
Quarter: 2011Q2

REPORT INFORMATION
  Report Type: 
  Country: None (occurrence: None)
  Receive Date: 20110511
  Receipt Date: 20110503
  Transmission Date: 20111010
  Serious: Yes (Other)
  Sender: FDA-Public Use
  Company Number: US-PFIZER INC-2009249521

PATIENT
  Sex: Female
  Weight: 77 kg

DRUGS (5)
  1. PROVERA [Suspect]
     Indication: HORMONE REPLACEMENT THERAPY
     Dosage: 2.5 MG, UNK
     Route: 048
     Dates: start: 19920901, end: 19970401
  2. PREMARIN [Suspect]
     Indication: HORMONE REPLACEMENT THERAPY
     Dosage: 0.625 MG, UNK
     Route: 048
     Dates: start: 19920901, end: 19970401
  3. PREMPRO [Suspect]
     Indication: HORMONE REPLACEMENT THERAPY
     Dosage: UNK
     Route: 048
     Dates: start: 19970401, end: 20010101
  4. TOPROL-XL [Concomitant]
     Indication: HYPERTENSION
     Dosage: 100 MG, UNK
     Dates: start: 19800101
  5. SYNTHROID [Concomitant]
     Indication: THYROID DISORDER
     Dosage: 0.125 MG, UNK
     Dates: start: 19800101

REACTIONS (1)
  - BREAST CANCER FEMALE [None]
